FAERS Safety Report 11409766 (Version 1)
Quarter: 2015Q3

REPORT INFORMATION
  Report Type: Spontaneous
  Country: US (occurrence: US)
  Receive Date: 20150824
  Receipt Date: 20150824
  Transmission Date: 20151125
  Serious: Yes (Hospitalization)
  Sender: FDA-Public Use
  Company Number: US-BRISTOL-MYERS SQUIBB COMPANY-BMS-2015-054869

PATIENT
  Sex: Male

DRUGS (2)
  1. ABILIFY [Suspect]
     Active Substance: ARIPIPRAZOLE
     Indication: DEPRESSION
     Dosage: UNK, QD
     Route: 065
  2. ABILIFY [Suspect]
     Active Substance: ARIPIPRAZOLE
     Indication: POST-TRAUMATIC STRESS DISORDER

REACTIONS (3)
  - Weight increased [Unknown]
  - Off label use [Unknown]
  - Tardive dyskinesia [Not Recovered/Not Resolved]
